FAERS Safety Report 5477701-X (Version None)
Quarter: 2007Q4

REPORT INFORMATION
  Report Type: 
  Country: None (occurrence: None)
  Receive Date: 20071003
  Receipt Date: 20071003
  Transmission Date: 20080405
  Serious: Yes (Life-Threatening)
  Sender: FDA-Public Use
  Company Number: None

PATIENT

DRUGS (3)
  1. INTRALIPID 20% [Suspect]
     Indication: PARENTERAL NUTRITION
  2. TPN (TPN) (TPN) [Concomitant]
  3. ANTIBIOTICS (ANTIBIOTICS) (ANTIBIOTICS) [Concomitant]

REACTIONS (6)
  - CHEST PAIN [None]
  - EMBOLIC STROKE [None]
  - INCORRECT ROUTE OF DRUG ADMINISTRATION [None]
  - INFUSION RELATED REACTION [None]
  - PAIN IN EXTREMITY [None]
  - PERIPHERAL COLDNESS [None]
